FAERS Safety Report 16629936 (Version 2)
Quarter: 2019Q3

REPORT INFORMATION
  Report Type: Report from Study
  Country: AU (occurrence: AU)
  Receive Date: 20190725
  Receipt Date: 20190731
  Transmission Date: 20191004
  Serious: Yes (Other)
  Sender: FDA-Public Use
  Company Number: AU-OTSUKA-2018_034087

PATIENT
  Age: 47 Year
  Sex: Female
  Weight: 89 kg

DRUGS (2)
  1. TOLVAPTAN [Suspect]
     Active Substance: TOLVAPTAN
     Dosage: 15 MG, QD (IN EVENING)
     Route: 065
  2. TOLVAPTAN [Suspect]
     Active Substance: TOLVAPTAN
     Indication: CONGENITAL CYSTIC KIDNEY DISEASE
     Dosage: 45 MG, QD (IN MORNING)
     Route: 065

REACTIONS (20)
  - Gamma-glutamyltransferase increased [Recovered/Resolved]
  - Blood sodium increased [Recovered/Resolved]
  - Protein total increased [Recovered/Resolved]
  - Blood creatinine increased [Not Recovered/Not Resolved]
  - Malignant melanoma [Recovered/Resolved]
  - Blood uric acid increased [Not Recovered/Not Resolved]
  - Blood alkaline phosphatase increased [Recovered/Resolved]
  - Blood alkaline phosphatase increased [Recovered/Resolved]
  - Blood albumin increased [Recovered/Resolved]
  - Gamma-glutamyltransferase increased [Recovered/Resolved]
  - Alanine aminotransferase increased [Recovered/Resolved]
  - Product dose omission [Unknown]
  - C-reactive protein increased [Not Recovered/Not Resolved]
  - Infection [Unknown]
  - Vomiting [Unknown]
  - Blood urea increased [Not Recovered/Not Resolved]
  - Body mass index increased [Unknown]
  - Blood cholesterol decreased [Unknown]
  - Gamma-glutamyltransferase increased [Unknown]
  - Glomerular filtration rate decreased [Not Recovered/Not Resolved]

NARRATIVE: CASE EVENT DATE: 20180208
